FAERS Safety Report 9003351 (Version 1)
Quarter: 2013Q1

REPORT INFORMATION
  Report Type: Spontaneous
  Country: US (occurrence: US)
  Receive Date: 20130108
  Receipt Date: 20130108
  Transmission Date: 20140127
  Serious: Yes (Other)
  Sender: FDA-Public Use
  Company Number: CHPA2013US000472

PATIENT
  Age: 85 Year
  Sex: Female

DRUGS (4)
  1. PREVACID 24HR 15MG [Suspect]
     Indication: GASTROOESOPHAGEAL REFLUX DISEASE
     Dosage: 30 MG, BID
     Route: 048
     Dates: start: 201212
  2. DRUG THERAPY NOS [Concomitant]
     Indication: BLOOD CHOLESTEROL
  3. ANALGESICS [Concomitant]
     Indication: PAIN
  4. BABY ASPIRIN [Concomitant]

REACTIONS (5)
  - Withdrawal syndrome [Recovered/Resolved]
  - Gastric disorder [Unknown]
  - Prescribed overdose [Unknown]
  - Off label use [Unknown]
  - Wrong technique in drug usage process [Recovered/Resolved]
